FAERS Safety Report 18246248 (Version 1)
Quarter: 2020Q3

REPORT INFORMATION
  Report Type: Spontaneous
  Country: US (occurrence: US)
  Receive Date: 20200909
  Receipt Date: 20200909
  Transmission Date: 20201103
  Serious: Yes (Hospitalization)
  Sender: FDA-Public Use
  Company Number: None

PATIENT
  Weight: 110.22 kg

DRUGS (2)
  1. RITUXIMAB (MOAB C2B8 ANTI CD20, CHIMERIC) [Concomitant]
     Active Substance: RITUXIMAB
  2. CYTARABINE (63878) [Suspect]
     Active Substance: CYTARABINE

REACTIONS (3)
  - Bacillus test positive [None]
  - Febrile neutropenia [None]
  - Tachycardia [None]

NARRATIVE: CASE EVENT DATE: 20200806
